FAERS Safety Report 20863192 (Version 1)
Quarter: 2022Q2

REPORT INFORMATION
  Report Type: Spontaneous
  Country: US (occurrence: None)
  Receive Date: 20220522
  Receipt Date: 20220522
  Transmission Date: 20220720
  Serious: No
  Sender: FDA-Public Use
  Company Number: None

PATIENT
  Sex: Male
  Weight: 67.5 kg

DRUGS (17)
  1. XARELTO [Suspect]
     Active Substance: RIVAROXABAN
     Indication: Thrombosis prophylaxis
     Dosage: OTHER QUANTITY : 1 TABLET(S);?FREQUENCY : DAILY;?
     Route: 048
  2. ATENOLOL [Concomitant]
     Active Substance: ATENOLOL
  3. PRAVASTATIN [Concomitant]
     Active Substance: PRAVASTATIN
  4. ESCITALOPRAM [Concomitant]
     Active Substance: ESCITALOPRAM OXALATE
  5. BABY ASPIRIN [Concomitant]
  6. Multi-Vitamin (Centrum) [Concomitant]
  7. VITAMIN C [Concomitant]
     Active Substance: ASCORBIC ACID
  8. COENZYME Q10 [Concomitant]
     Active Substance: DIETARY SUPPLEMENT\UBIDECARENONE
  9. Vitamin D 5000 IU [Concomitant]
  10. Omega-3 Salmon Oil [Concomitant]
  11. HERBALS\TURMERIC [Concomitant]
     Active Substance: HERBALS\TURMERIC
  12. MELATONIN [Concomitant]
     Active Substance: MELATONIN
  13. ALEVE [Concomitant]
     Active Substance: NAPROXEN SODIUM
  14. FOLIC ACID [Concomitant]
  15. PROBIOTICS NOS [Concomitant]
     Active Substance: PROBIOTICS NOS
  16. Prebiotics [Concomitant]
  17. ALPHA LIPOIC ACID [Concomitant]

REACTIONS (1)
  - Blood urine present [None]
